FAERS Safety Report 4318361-0 (Version None)
Quarter: 2004Q1

REPORT INFORMATION
  Report Type: 
  Country: None (occurrence: None)
  Receive Date: 20040315
  Receipt Date: 20031121
  Transmission Date: 20041129
  Serious: No
  Sender: FDA-Public Use
  Company Number: 2003188376US

PATIENT
  Age: 84 Year
  Sex: Female

DRUGS (4)
  1. BEXTRA [Suspect]
     Indication: OSTEOARTHRITIS
     Dates: start: 20030101
  2. PLAVIX [Concomitant]
  3. ATENOLOL [Concomitant]
  4. GLUCOPHAGE [Concomitant]

REACTIONS (1)
  - ILL-DEFINED DISORDER [None]
